FAERS Safety Report 8459607-7 (Version None)
Quarter: 2012Q2

REPORT INFORMATION
  Report Type: 
  Country: None (occurrence: None)
  Receive Date: 20120622
  Receipt Date: 20120618
  Transmission Date: 20120825
  Serious: Yes (Other)
  Sender: FDA-Public Use
  Company Number: US-GLAXOSMITHKLINE-A0969724A

PATIENT
  Age: 74 Year
  Sex: Female

DRUGS (3)
  1. ADVAIR DISKUS 100/50 [Suspect]
     Indication: ASTHMA
     Dosage: 1PUFF TWICE PER DAY
     Route: 055
     Dates: start: 20080101
  2. EYE MEDICATION [Concomitant]
  3. PROVENTIL [Concomitant]

REACTIONS (3)
  - DRUG ADMINISTRATION ERROR [None]
  - ASTHMA [None]
  - PRODUCT QUALITY ISSUE [None]
